FAERS Safety Report 5852924-6 (Version None)
Quarter: 2008Q3

REPORT INFORMATION
  Report Type: 
  Country: None (occurrence: None)
  Receive Date: 20080821
  Receipt Date: 20080819
  Transmission Date: 20090109
  Serious: Yes (Death, Hospitalization, Other)
  Sender: FDA-Public Use
  Company Number: US-BAYER-200824524NA

PATIENT
  Age: 57 Year
  Sex: Female
  Weight: 84 kg

DRUGS (16)
  1. CAMPATH [Suspect]
     Indication: CHRONIC LYMPHOCYTIC LEUKAEMIA
     Dosage: TOTAL DAILY DOSE: 30 MG
     Route: 058
     Dates: start: 20080211, end: 20080516
  2. LISINOPRIL [Concomitant]
     Dosage: TOTAL DAILY DOSE: 20 MG
  3. ZOCOR [Concomitant]
     Dosage: TOTAL DAILY DOSE: 40 MG
  4. SYNTHROID [Concomitant]
     Dosage: TOTAL DAILY DOSE: 75 ?G
  5. VICODIN ES [Concomitant]
  6. BENADRYL [Concomitant]
     Indication: PREMEDICATION
     Dosage: AS USED: 50 MG
     Route: 048
  7. PEPCID [Concomitant]
     Indication: PREMEDICATION
     Dosage: AS USED: 20 MG
     Route: 048
  8. TYLENOL [Concomitant]
     Indication: PREMEDICATION
     Dosage: AS USED: 650 MG
     Route: 048
  9. VENOFER [Concomitant]
     Indication: IRON DEFICIENCY ANAEMIA
  10. HYDRODIURIL [Concomitant]
     Dosage: TOTAL DAILY DOSE: 6.25 MG  UNIT DOSE: 12.5 MG
  11. PROMETHAZINE [Concomitant]
  12. AMITRIPTYLINE HCL [Concomitant]
  13. PROTONIX [Concomitant]
     Dosage: TOTAL DAILY DOSE: 40 MG
  14. VYTORIN [Concomitant]
  15. ZOLPIDEM [Concomitant]
     Indication: INSOMNIA
  16. EPIDURAL INJECTIONS [Concomitant]
     Indication: NECK PAIN

REACTIONS (7)
  - ANAEMIA [None]
  - ANAEMIA HAEMOLYTIC AUTOIMMUNE [None]
  - ASTHENIA [None]
  - CONFUSIONAL STATE [None]
  - INCOHERENT [None]
  - INTRAVASCULAR HAEMOLYSIS [None]
  - MALAISE [None]
